FAERS Safety Report 13711889 (Version 1)
Quarter: 2017Q3

REPORT INFORMATION
  Report Type: Spontaneous
  Country: US (occurrence: US)
  Receive Date: 20170703
  Receipt Date: 20170703
  Transmission Date: 20171127
  Serious: Yes (Other)
  Sender: FDA-Public Use
  Company Number: None

PATIENT
  Age: 64 Year
  Sex: Male
  Weight: 92.25 kg

DRUGS (5)
  1. GLUCOSAMINE CHONDROITIN [Concomitant]
     Active Substance: CHONDROITIN SULFATE (BOVINE)\GLUCOSAMINE HYDROCHLORIDE
  2. VITAMIN B12 [Concomitant]
     Active Substance: CYANOCOBALAMIN
  3. SUPREP BOWEL PREP [Suspect]
     Active Substance: MAGNESIUM SULFATE\POTASSIUM SULFATE\SODIUM SULFATE
     Indication: COLONOSCOPY
     Route: 048
     Dates: start: 20170621, end: 20170622
  4. FOCUS FACTOR EYE CARE [Concomitant]
  5. D-3 [Concomitant]
     Active Substance: CHOLECALCIFEROL

REACTIONS (5)
  - Sinus arrhythmia [None]
  - Heart rate decreased [None]
  - Nausea [None]
  - Heart rate abnormal [None]
  - Dizziness [None]

NARRATIVE: CASE EVENT DATE: 20170622
